FAERS Safety Report 5233961-1 (Version None)
Quarter: 2007Q1

REPORT INFORMATION
  Report Type: 
  Country: None (occurrence: None)
  Receive Date: 20070206
  Receipt Date: 20070124
  Transmission Date: 20070707
  Serious: Yes (Death)
  Sender: FDA-Public Use
  Company Number: 151632ISR

PATIENT
  Age: 64 Year
  Sex: Female

DRUGS (1)
  1. SERTRALINE [Suspect]

REACTIONS (6)
  - COMPLETED SUICIDE [None]
  - DEPRESSION [None]
  - DROWNING [None]
  - DRUG LEVEL BELOW THERAPEUTIC [None]
  - OVERDOSE [None]
  - PARANOIA [None]
